FAERS Safety Report 6754809-X (Version None)
Quarter: 2010Q2

REPORT INFORMATION
  Report Type: 
  Country: None (occurrence: None)
  Receive Date: 20100527
  Receipt Date: 20100514
  Transmission Date: 20101027
  Serious: Yes (Death)
  Sender: FDA-Public Use
  Company Number: B0601864A

PATIENT
  Age: 42 Year
  Sex: Male
  Weight: 83.8247 kg

DRUGS (14)
  1. NICOTINE [Suspect]
     Indication: DRUG USE FOR UNKNOWN INDICATION
     Dosage: 25 PATCH/ TRANSDERMAL
     Route: 062
  2. TRAMADOL HCL [Suspect]
  3. DIPHENHYDRAMINE (DIPHENHYDRAMINE) (FORMULATION UNKNOWN) (GENERIC) [Suspect]
  4. NICODERM CQ [Suspect]
     Dosage: ORAL
     Route: 048
  5. ACETAMINOPHEN [Suspect]
  6. TOBACCO (TOBACCO) (FORMULATION UNKNOWN) [Suspect]
  7. ZOPICLONE (ZOPICLONE) (FORMULATION UNKNOWN) [Suspect]
  8. ETHANOL (ALCOHOL) (FORMULATION UNKNOWN) [Suspect]
  9. UNKNOWN (UNKNOWN) (FORMULATION UNKNOWN) [Suspect]
  10. ZINC SALT (ZINC SALT) (FORMULATION UNKNOWN) [Suspect]
  11. UNKNONW (UNKNOWN) (FORMULATION UNKNOWN) [Suspect]
  12. ARSENIC (ARSENIC) (FORMULATION UNKNOWN) [Suspect]
  13. UNKNOWN (UNKNOWN) (FORMULATION UNKNOWN) [Suspect]
  14. PHOSPHORIC ACID (PHOSPHORIC ACID) (FORMULATION UNKNOWN) [Suspect]

REACTIONS (12)
  - ARTERIOSCLEROSIS CORONARY ARTERY [None]
  - BRAIN OEDEMA [None]
  - CARDIOPULMONARY FAILURE [None]
  - COMPLETED SUICIDE [None]
  - DRUG INTERACTION [None]
  - DRUG TOXICITY [None]
  - HYPOTENSION [None]
  - MYOCARDIAL INFARCTION [None]
  - MYOCARDIAL ISCHAEMIA [None]
  - PETECHIAE [None]
  - PULMONARY CONGESTION [None]
  - PULMONARY OEDEMA [None]
